FAERS Safety Report 17487560 (Version 1)
Quarter: 2020Q1

REPORT INFORMATION
  Report Type: Spontaneous
  Country: CA (occurrence: CA)
  Receive Date: 20200303
  Receipt Date: 20200303
  Transmission Date: 20200409
  Serious: Yes (Hospitalization, Other)
  Sender: FDA-Public Use
  Company Number: CA-PFIZER INC-2020093204

PATIENT
  Age: 32 Year
  Sex: Female

DRUGS (5)
  1. FENTANYL CITRATE. [Suspect]
     Active Substance: FENTANYL CITRATE
     Indication: SPINAL ANAESTHESIA
     Dosage: 20 UG, UNK
     Route: 037
  2. BUPIVACAINE HCL [Suspect]
     Active Substance: BUPIVACAINE HYDROCHLORIDE
     Dosage: UNK
     Route: 037
  3. PHENYLEPHRINE HCL [Suspect]
     Active Substance: PHENYLEPHRINE HYDROCHLORIDE
     Dosage: 50 UG, UNK
     Route: 047
  4. PHENYLEPHRINE HCL [Suspect]
     Active Substance: PHENYLEPHRINE HYDROCHLORIDE
     Dosage: 25 UG, UNK
     Route: 065
  5. MORPHINE SULFATE. [Suspect]
     Active Substance: MORPHINE SULFATE
     Indication: SPINAL ANAESTHESIA
     Dosage: 150 UG, UNK
     Route: 037

REACTIONS (4)
  - Anterior spinal artery syndrome [Unknown]
  - Hypotension [Unknown]
  - Bradycardia [Unknown]
  - Rhythm idioventricular [Unknown]
